FAERS Safety Report 5218674-4 (Version None)
Quarter: 2007Q1

REPORT INFORMATION
  Report Type: 
  Country: None (occurrence: None)
  Receive Date: 20070122
  Receipt Date: 20070116
  Transmission Date: 20070707
  Serious: Yes (Hospitalization)
  Sender: FDA-Public Use
  Company Number: 163-C5013-06080222

PATIENT
  Age: 61 Year
  Sex: Female
  Weight: 81.4207 kg

DRUGS (14)
  1. REVLIMID [Suspect]
     Indication: MULTIPLE MYELOMA
     Dosage: 25 MG, 1 IN 1 D, ORAL
     Route: 048
     Dates: start: 20060628, end: 20060718
  2. DEXAMETHASONE TAB [Suspect]
     Indication: MULTIPLE MYELOMA
     Dosage: ORAL
     Route: 048
     Dates: start: 20060628
  3. VELCADE [Suspect]
     Indication: MULTIPLE MYELOMA
     Dates: start: 20060628
  4. HYDROCHLOROTHIAZIDE [Concomitant]
  5. GABAPENTIN [Concomitant]
  6. FAMVIR [Concomitant]
  7. RANITIDINE [Concomitant]
  8. ATENOLOL [Concomitant]
  9. OAT BRAN [Concomitant]
  10. K-DUR 10 [Concomitant]
  11. VITAMIN B (VITAMIN B) [Concomitant]
  12. FISH OIL (FISH OIL) [Concomitant]
  13. PROCRIT [Concomitant]
  14. MORPHINE SULFATE [Concomitant]

REACTIONS (6)
  - AMYLOIDOSIS [None]
  - ANAEMIA [None]
  - HAEMODIALYSIS [None]
  - HYPERTENSION [None]
  - OEDEMA [None]
  - RENAL FAILURE CHRONIC [None]
